FAERS Safety Report 6825382-2 (Version None)
Quarter: 2010Q3

REPORT INFORMATION
  Report Type: 
  Country: None (occurrence: None)
  Receive Date: 20100708
  Receipt Date: 20070103
  Transmission Date: 20110219
  Serious: Yes (Other)
  Sender: FDA-Public Use
  Company Number: US-PFIZER INC-2007001987

PATIENT
  Sex: Female
  Weight: 63.5 kg

DRUGS (12)
  1. CHANTIX [Suspect]
     Indication: SMOKING CESSATION THERAPY
     Dates: start: 20061222, end: 20061230
  2. INDAPAMIDE [Concomitant]
  3. ENALAPRIL MALEATE [Concomitant]
  4. ALL OTHER THERAPEUTIC PRODUCTS [Concomitant]
  5. LYRICA [Concomitant]
  6. LEXAPRO [Concomitant]
  7. SPIRIVA [Concomitant]
  8. DRUG, UNSPECIFIED [Concomitant]
  9. LUNESTA [Concomitant]
  10. FLEXERIL [Concomitant]
  11. HYDROCODONE BITARTRATE [Concomitant]
  12. SUMATRIPTAN SUCCINATE (IMITREX) [Concomitant]

REACTIONS (7)
  - DISTURBANCE IN SEXUAL AROUSAL [None]
  - FEELING ABNORMAL [None]
  - INCREASED APPETITE [None]
  - INSOMNIA [None]
  - MYDRIASIS [None]
  - PSYCHOTIC DISORDER [None]
  - TREMOR [None]
